FAERS Safety Report 15434830 (Version 1)
Quarter: 2018Q3

REPORT INFORMATION
  Report Type: Spontaneous
  Country: US (occurrence: US)
  Receive Date: 20180922
  Receipt Date: 20180922
  Transmission Date: 20181010
  Serious: No
  Sender: FDA-Public Use
  Company Number: None

PATIENT
  Age: 35 Year
  Sex: Female
  Weight: 50.4 kg

DRUGS (1)
  1. VENOFER [Suspect]
     Active Substance: IRON SUCROSE
     Indication: IRON DEFICIENCY ANAEMIA
     Route: 042
     Dates: start: 20180824, end: 20180829

REACTIONS (15)
  - Nausea [None]
  - Fatigue [None]
  - Paraesthesia [None]
  - Lethargy [None]
  - Headache [None]
  - Pruritus [None]
  - Asthenia [None]
  - Rash [None]
  - Peripheral swelling [None]
  - Dizziness [None]
  - Weight decreased [None]
  - Arthralgia [None]
  - Urticaria [None]
  - Chest discomfort [None]
  - Panic attack [None]

NARRATIVE: CASE EVENT DATE: 20180829
